FAERS Safety Report 12435439 (Version 1)
Quarter: 2016Q2

REPORT INFORMATION
  Report Type: Spontaneous
  Country: US (occurrence: US)
  Receive Date: 20160603
  Receipt Date: 20160603
  Transmission Date: 20160815
  Serious: Yes (Other)
  Sender: FDA-Public Use
  Company Number: US-ROCHE-1708161

PATIENT
  Age: 42 Year
  Sex: Female
  Weight: 72.3 kg

DRUGS (30)
  1. COLACE [Concomitant]
     Active Substance: DOCUSATE SODIUM
     Indication: CONSTIPATION
     Dosage: 3 TABLET DAILY
     Route: 048
     Dates: start: 20150801
  2. PANTOPRAZOLE [Concomitant]
     Active Substance: PANTOPRAZOLE SODIUM
     Indication: GASTROOESOPHAGEAL REFLUX DISEASE
     Dosage: 1 TABLET DAILY
     Route: 048
     Dates: start: 20150801
  3. VALIUM [Concomitant]
     Active Substance: DIAZEPAM
     Indication: ANXIETY
     Dosage: 1 TABLET AS NEEDED
     Route: 048
     Dates: start: 20151228
  4. TEMSIROLIMUS [Suspect]
     Active Substance: TEMSIROLIMUS
     Indication: GLIOBLASTOMA
     Dosage: SINGLE DOSE
     Route: 042
     Dates: start: 20160104, end: 20160104
  5. SERTRALINE HCL [Concomitant]
     Active Substance: SERTRALINE HYDROCHLORIDE
     Indication: DEPRESSION
     Dosage: 1 TABLET DAILY
     Route: 048
     Dates: start: 20051201
  6. SODIUM CHLORIDE. [Concomitant]
     Active Substance: SODIUM CHLORIDE
     Indication: HYPONATRAEMIA
     Dosage: 1 TABLET
     Route: 048
     Dates: start: 20151228
  7. LOPERAMIDE [Concomitant]
     Active Substance: LOPERAMIDE
     Indication: DIARRHOEA
  8. TEMOZOLOMIDE. [Concomitant]
     Active Substance: TEMOZOLOMIDE
     Dosage: DAILY X 6 WEEKS
     Route: 065
     Dates: start: 20150813, end: 20150924
  9. VIMPAT [Concomitant]
     Active Substance: LACOSAMIDE
     Route: 048
     Dates: start: 20150801
  10. ZOFRAN [Concomitant]
     Active Substance: ONDANSETRON HYDROCHLORIDE
     Indication: NAUSEA
     Dosage: ONE TABLET AS NEEDED
     Route: 048
     Dates: start: 201508
  11. CLONAZEPAM. [Suspect]
     Active Substance: CLONAZEPAM
     Indication: ANXIETY
     Route: 048
     Dates: start: 20150801, end: 20151227
  12. SENNA [Concomitant]
     Active Substance: SENNA LEAF\SENNOSIDES\SENNOSIDES A AND B
     Indication: CONSTIPATION
     Route: 048
     Dates: start: 20150801
  13. DEXAMETHASONE. [Concomitant]
     Active Substance: DEXAMETHASONE
     Indication: BRAIN OEDEMA
     Route: 048
     Dates: start: 20150801, end: 20151227
  14. DEXAMETHASONE. [Concomitant]
     Active Substance: DEXAMETHASONE
     Route: 048
     Dates: start: 20151231
  15. PRAVASTATIN [Concomitant]
     Active Substance: PRAVASTATIN\PRAVASTATIN SODIUM
     Indication: BLOOD CHOLESTEROL INCREASED
     Route: 048
     Dates: start: 20151228
  16. MELATONIN [Concomitant]
     Active Substance: MELATONIN
     Indication: INSOMNIA
     Dosage: 1 TABLET AS NEEDED AT BEDTIME
     Route: 048
     Dates: start: 20151227
  17. TYLENOL [Concomitant]
     Active Substance: ACETAMINOPHEN
     Indication: HEADACHE
  18. TEMOZOLOMIDE. [Concomitant]
     Active Substance: TEMOZOLOMIDE
     Route: 065
     Dates: start: 20151101, end: 20151105
  19. CLONAZEPAM. [Suspect]
     Active Substance: CLONAZEPAM
     Route: 048
     Dates: start: 20151228
  20. PERIFOSINE [Suspect]
     Active Substance: PERIFOSINE
     Indication: GLIOBLASTOMA
     Dosage: 4 DOSES TOTAL
     Route: 048
     Dates: start: 20160104, end: 20160105
  21. ACETAMINOPHEN. [Concomitant]
     Active Substance: ACETAMINOPHEN
     Indication: HEADACHE
     Dosage: 1 TABLET AS NEEDED
     Route: 048
     Dates: start: 201512
  22. GRANISETRON [Concomitant]
     Active Substance: GRANISETRON
  23. MEPRON (UNITED STATES) [Concomitant]
     Indication: ANTIFUNGAL PROPHYLAXIS
     Dosage: 750 MG/5ML, 10 ML DAILY
     Route: 048
     Dates: start: 20151229
  24. ATIVAN [Suspect]
     Active Substance: LORAZEPAM
     Indication: CONVULSION PROPHYLAXIS
     Dosage: 1 TABLET
     Route: 048
     Dates: start: 20150801
  25. LIDOCAINE/PRILOCAINE [Concomitant]
     Active Substance: LIDOCAINE\PRILOCAINE
     Indication: PAIN PROPHYLAXIS
     Route: 065
     Dates: start: 20151228
  26. VIMPAT [Concomitant]
     Active Substance: LACOSAMIDE
     Indication: CONVULSION PROPHYLAXIS
     Route: 048
     Dates: start: 20150801
  27. DEPAKOTE ER [Concomitant]
     Active Substance: DIVALPROEX SODIUM
     Indication: CONVULSION PROPHYLAXIS
     Route: 048
     Dates: start: 20150801
  28. PANTOPRAZOLE [Concomitant]
     Active Substance: PANTOPRAZOLE SODIUM
     Indication: PROPHYLAXIS
  29. DEXAMETHASONE. [Concomitant]
     Active Substance: DEXAMETHASONE
     Dosage: 2 MG IN MORNING AND 1 MG IN EVENING
     Route: 048
     Dates: start: 20151228, end: 20151230
  30. BACTRIM DS [Concomitant]
     Active Substance: SULFAMETHOXAZOLE\TRIMETHOPRIM
     Indication: ANTIFUNGAL PROPHYLAXIS
     Route: 048
     Dates: start: 20150801, end: 20151228

REACTIONS (1)
  - Fall [Unknown]

NARRATIVE: CASE EVENT DATE: 20160105
